FAERS Safety Report 10240529 (Version 1)
Quarter: 2014Q2

REPORT INFORMATION
  Report Type: Spontaneous
  Country: TH (occurrence: TH)
  Receive Date: 20140617
  Receipt Date: 20140617
  Transmission Date: 20141212
  Serious: Yes (Death)
  Sender: FDA-Public Use
  Company Number: PHHY2014TH073422

PATIENT
  Sex: Female

DRUGS (3)
  1. CERTICAN [Suspect]
     Dosage: UNK UKN, UNK
  2. NEORAL [Suspect]
     Dosage: UNK UKN, UNK
  3. CELLCEPT [Suspect]
     Dosage: UNK UKN, UNK

REACTIONS (2)
  - Metastases to lung [Fatal]
  - Renal cancer [Fatal]
